FAERS Safety Report 13697818 (Version 2)
Quarter: 2017Q3

REPORT INFORMATION
  Report Type: Spontaneous
  Country: DK (occurrence: DK)
  Receive Date: 20170628
  Receipt Date: 20170711
  Transmission Date: 20171127
  Serious: Yes (Death, Life-Threatening, Hospitalization)
  Sender: FDA-Public Use
  Company Number: DK-TEVA-2015-15763

PATIENT
  Age: 43 Year
  Sex: Male

DRUGS (2)
  1. PANODIL [Concomitant]
     Active Substance: ACETAMINOPHEN
     Indication: PAIN
     Dosage: 4 GRAM DAILY; 4 G, DAILY
     Route: 065
     Dates: start: 201502, end: 201506
  2. IBUPROFEN ACTAVIS [Suspect]
     Active Substance: IBUPROFEN
     Indication: PAIN
     Dosage: 800 MILLIGRAM DAILY; 800 MG, DAILY
     Route: 048
     Dates: start: 201502, end: 201506

REACTIONS (16)
  - Oesophageal ulcer haemorrhage [Fatal]
  - Faeces discoloured [Unknown]
  - Drug-induced liver injury [Fatal]
  - Jaundice [Unknown]
  - Cardiac arrest [Fatal]
  - Cholelithiasis [Recovered/Resolved]
  - Fatigue [Unknown]
  - Nausea [Unknown]
  - Haematemesis [Unknown]
  - Food aversion [Unknown]
  - Polyuria [Recovered/Resolved]
  - Pneumonia [Unknown]
  - Fungal oesophagitis [Unknown]
  - Acute hepatic failure [Recovering/Resolving]
  - Hepatic necrosis [Recovering/Resolving]
  - Muscle spasms [Unknown]

NARRATIVE: CASE EVENT DATE: 201506
